FAERS Safety Report 7808134-6 (Version None)
Quarter: 2011Q4

REPORT INFORMATION
  Report Type: 
  Country: None (occurrence: None)
  Receive Date: 20111011
  Receipt Date: 20110926
  Transmission Date: 20120403
  Serious: Yes (Hospitalization, Other)
  Sender: FDA-Public Use
  Company Number: ES-ROCHE-1000446

PATIENT
  Age: 55 Year
  Sex: Male

DRUGS (2)
  1. COPEGUS [Suspect]
     Indication: HEPATITIS C
     Dates: start: 20110110, end: 20110527
  2. PEGASYS [Suspect]
     Indication: HEPATITIS C
     Dates: start: 20110110, end: 20110527

REACTIONS (1)
  - LUNG CANCER METASTATIC [None]
